FAERS Safety Report 6215878-9 (Version None)
Quarter: 2009Q2

REPORT INFORMATION
  Report Type: 
  Country: None (occurrence: None)
  Receive Date: 20090605
  Receipt Date: 20090529
  Transmission Date: 20091009
  Serious: Yes (Other)
  Sender: FDA-Public Use
  Company Number: US-ROCHE-632863

PATIENT
  Age: 69 Year
  Sex: Female

DRUGS (4)
  1. BONIVA [Suspect]
     Indication: OSTEOPOROSIS
     Route: 048
     Dates: start: 20070701, end: 20080601
  2. BONIVA [Suspect]
     Dosage: OTHER INDICATION: ^LOW T SCORES^
     Route: 048
     Dates: end: 20081031
  3. MULTI-VITAMIN [Concomitant]
     Dosage: DRUG: MULTIVITAMINS
  4. CALCIUM [Concomitant]

REACTIONS (3)
  - FEMUR FRACTURE [None]
  - PAIN IN EXTREMITY [None]
  - STRESS FRACTURE [None]
